FAERS Safety Report 19133704 (Version 1)
Quarter: 2021Q2

REPORT INFORMATION
  Report Type: Spontaneous
  Country: CA (occurrence: CA)
  Receive Date: 20210414
  Receipt Date: 20210414
  Transmission Date: 20210717
  Serious: Yes (Life-Threatening, Hospitalization, Other)
  Sender: FDA-Public Use
  Company Number: CA-PFIZER INC-2021364852

PATIENT

DRUGS (10)
  1. BENADRYL [Concomitant]
     Active Substance: DIPHENHYDRAMINE HYDROCHLORIDE
     Indication: PREMEDICATION
     Dosage: 50 MG
     Route: 048
  2. HYDRALAZINE [Concomitant]
     Active Substance: HYDRALAZINE HYDROCHLORIDE
     Dosage: UNK
     Route: 065
  3. LASIX [Concomitant]
     Active Substance: FUROSEMIDE
     Dosage: UNK
     Route: 065
  4. IRON SULPHATE [Concomitant]
     Active Substance: FERROUS SULFATE ANHYDROUS
     Dosage: UNK
     Route: 065
  5. TYLENOL [Concomitant]
     Active Substance: ACETAMINOPHEN
     Indication: PREMEDICATION
     Dosage: 650 MG
     Route: 048
  6. RITUXIMAB. [Suspect]
     Active Substance: RITUXIMAB
     Indication: VASCULITIS
     Dosage: UNK
     Route: 042
  7. SOLU?MEDROL [Concomitant]
     Active Substance: METHYLPREDNISOLONE SODIUM SUCCINATE
     Indication: PREMEDICATION
     Dosage: 100 MG
     Route: 042
  8. RITUXIMAB. [Suspect]
     Active Substance: RITUXIMAB
     Dosage: 680 MG
     Route: 042
  9. PREDNISONE. [Concomitant]
     Active Substance: PREDNISONE
     Dosage: UNK
     Route: 065
  10. PRINIVIL [Concomitant]
     Active Substance: LISINOPRIL
     Dosage: UNK
     Route: 065

REACTIONS (7)
  - Infusion related reaction [Not Recovered/Not Resolved]
  - Renal failure [Not Recovered/Not Resolved]
  - Drug ineffective [Not Recovered/Not Resolved]
  - Neutropenic sepsis [Not Recovered/Not Resolved]
  - Haematemesis [Not Recovered/Not Resolved]
  - Off label use [Not Recovered/Not Resolved]
  - Cardiac disorder [Not Recovered/Not Resolved]
